FAERS Safety Report 7327309-6 (Version None)
Quarter: 2011Q1

REPORT INFORMATION
  Report Type: 
  Country: None (occurrence: None)
  Receive Date: 20110302
  Receipt Date: 20110221
  Transmission Date: 20110831
  Serious: Yes (Death, Life-Threatening, Hospitalization)
  Sender: FDA-Public Use
  Company Number: US-ABBOTT-10P-163-0687169-00

PATIENT
  Sex: Male
  Weight: 88.53 kg

DRUGS (10)
  1. HUMIRA [Suspect]
     Route: 058
     Dates: end: 20100901
  2. LEVOTHYROXINE [Concomitant]
     Indication: HYPOTHYROIDISM
     Dates: start: 20000101
  3. ZEBETA [Concomitant]
     Indication: HYPERTENSION
     Dates: start: 20000101
  4. SIMVASTATIN [Concomitant]
     Indication: HYPERCHOLESTEROLAEMIA
     Dates: start: 20000101
  5. WARFARIN [Concomitant]
     Indication: CEREBROVASCULAR ACCIDENT PROPHYLAXIS
     Dates: start: 20030101
  6. PREDNISONE TAB [Concomitant]
     Indication: ARTHRITIS
     Dates: start: 20060101
  7. METOPROLOL [Concomitant]
     Indication: HYPERTENSION
  8. GALANTAMINE HYDROBROMIDE [Concomitant]
     Indication: DEMENTIA
     Dates: start: 20030101
  9. COUMADIN [Concomitant]
     Indication: ANTICOAGULANT THERAPY
     Dates: start: 20100101, end: 20101121
  10. HUMIRA [Suspect]
     Indication: PSORIASIS
     Route: 058
     Dates: start: 20100701

REACTIONS (2)
  - HEPATIC FAILURE [None]
  - DIVERTICULITIS [None]
